FAERS Safety Report 22190553 (Version 2)
Quarter: 2023Q2

REPORT INFORMATION
  Report Type: Spontaneous
  Country: US (occurrence: US)
  Receive Date: 20230410
  Receipt Date: 20230428
  Transmission Date: 20230722
  Serious: No
  Sender: FDA-Public Use
  Company Number: US-HETERO-HET2023US00834

PATIENT
  Sex: Female
  Weight: 64 kg

DRUGS (2)
  1. ATOVAQUONE [Suspect]
     Active Substance: ATOVAQUONE
     Indication: Lung transplant
     Dosage: 10 MILLILITER, QD
     Route: 048
     Dates: start: 2021, end: 20230403
  2. ATOVAQUONE [Suspect]
     Active Substance: ATOVAQUONE
     Dosage: 10 MILLILITER, QD
     Route: 048
     Dates: start: 20230406

REACTIONS (5)
  - Fatigue [Recovered/Resolved]
  - Hunger [Recovered/Resolved]
  - Somnolence [Recovered/Resolved]
  - Hair disorder [Recovered/Resolved]
  - Recalled product administered [Unknown]
